FAERS Safety Report 4423507-X (Version None)
Quarter: 2004Q3

REPORT INFORMATION
  Report Type: 
  Country: None (occurrence: None)
  Receive Date: 20040806
  Receipt Date: 20040719
  Transmission Date: 20050211
  Serious: Yes (Death)
  Sender: FDA-Public Use
  Company Number: GBS040615094

PATIENT
  Age: 33 Year
  Sex: Female

DRUGS (2)
  1. PROZAC [Suspect]
     Indication: DEPRESSION
     Dosage: 20 MG DAY
     Dates: start: 20021230
  2. ZOPICLONE [Concomitant]

REACTIONS (5)
  - BRAIN OEDEMA [None]
  - COMPLETED SUICIDE [None]
  - FALL [None]
  - POLYTRAUMATISM [None]
  - PULMONARY OEDEMA [None]
